FAERS Safety Report 7389622-6 (Version None)
Quarter: 2011Q2

REPORT INFORMATION
  Report Type: 
  Country: None (occurrence: None)
  Receive Date: 20110401
  Receipt Date: 20110323
  Transmission Date: 20111010
  Serious: Yes (Other)
  Sender: FDA-Public Use
  Company Number: KR-SANOFI-AVENTIS-2011SA017608

PATIENT
  Age: 68 Year
  Sex: Female
  Weight: 48 kg

DRUGS (2)
  1. LANTUS [Suspect]
     Indication: DIABETES MELLITUS
     Route: 058
  2. ANTIHYPERTENSIVES [Concomitant]

REACTIONS (5)
  - HYPOGLYCAEMIC UNCONSCIOUSNESS [None]
  - DIZZINESS [None]
  - BLOOD GLUCOSE INCREASED [None]
  - HYPERTENSION [None]
  - CEREBRAL INFARCTION [None]
